FAERS Safety Report 17716608 (Version 2)
Quarter: 2021Q2

REPORT INFORMATION
  Report Type: Spontaneous
  Country: US (occurrence: US)
  Receive Date: 20200428
  Receipt Date: 20210528
  Transmission Date: 20210716
  Serious: Yes (Death, Hospitalization, Other)
  Sender: FDA-Public Use
  Company Number: US-ASTRAZENECA-2020SE55325

PATIENT
  Age: 61 Year
  Sex: Female
  Weight: 72.6 kg

DRUGS (66)
  1. METOCLOPRAMIDE. [Concomitant]
     Active Substance: METOCLOPRAMIDE
     Indication: IMPAIRED GASTRIC EMPTYING
  2. ZETIA [Concomitant]
     Active Substance: EZETIMIBE
     Indication: BLOOD CHOLESTEROL INCREASED
  3. SERTRALINE [Concomitant]
     Active Substance: SERTRALINE HYDROCHLORIDE
     Indication: DEPRESSION
  4. LORAZEPAM. [Concomitant]
     Active Substance: LORAZEPAM
  5. DOCUSATE SODIUM. [Concomitant]
     Active Substance: DOCUSATE SODIUM
  6. DULCOLAX NOS [Concomitant]
     Active Substance: BISACODYL OR DOCUSATE SODIUM
  7. POLYETHYLENE GLYCOL [Concomitant]
     Active Substance: POLYETHYLENE GLYCOLS
  8. PRILOSEC [Suspect]
     Active Substance: OMEPRAZOLE MAGNESIUM
     Indication: GASTROOESOPHAGEAL REFLUX DISEASE
     Route: 048
     Dates: start: 199001, end: 201205
  9. PRILOSEC [Suspect]
     Active Substance: OMEPRAZOLE MAGNESIUM
     Indication: GASTROOESOPHAGEAL REFLUX DISEASE
     Route: 048
     Dates: start: 1990, end: 2012
  10. PREVACID [Suspect]
     Active Substance: LANSOPRAZOLE
     Indication: GASTROOESOPHAGEAL REFLUX DISEASE
     Route: 065
     Dates: start: 199001, end: 201205
  11. KAYEXALATE [Concomitant]
     Active Substance: SODIUM POLYSTYRENE SULFONATE
  12. FEXOFENADINE [Concomitant]
     Active Substance: FEXOFENADINE HYDROCHLORIDE
  13. LEVAQUIN [Concomitant]
     Active Substance: LEVOFLOXACIN
  14. BLEPHAMIDE [Concomitant]
     Active Substance: PREDNISOLONE ACETATE\SULFACETAMIDE SODIUM
  15. CITALOPRAM [Concomitant]
     Active Substance: CITALOPRAM HYDROBROMIDE
  16. SALINE [Concomitant]
     Active Substance: SODIUM CHLORIDE
  17. DILAUDID [Concomitant]
     Active Substance: HYDROMORPHONE HYDROCHLORIDE
  18. AMLODIPINE [Concomitant]
     Active Substance: AMLODIPINE BESYLATE
     Indication: ANGINA UNSTABLE
  19. LISINOPRIL. [Concomitant]
     Active Substance: LISINOPRIL
     Indication: HYPERTENSION
  20. PEPCID [Concomitant]
     Active Substance: FAMOTIDINE
  21. SODIUM BICARBONATE. [Concomitant]
     Active Substance: SODIUM BICARBONATE
  22. BENZONATATE. [Concomitant]
     Active Substance: BENZONATATE
  23. CLONIDINE. [Concomitant]
     Active Substance: CLONIDINE
  24. MEGESTROL [Concomitant]
     Active Substance: MEGESTROL
  25. FLONASE [Concomitant]
     Active Substance: FLUTICASONE PROPIONATE
  26. CALCIUM GLUCONATE. [Concomitant]
     Active Substance: CALCIUM GLUCONATE
  27. LANTUS [Concomitant]
     Active Substance: INSULIN GLARGINE
     Indication: DIABETES MELLITUS
  28. DIATX [Concomitant]
     Active Substance: ASCORBIC ACID\BIOTIN\CALCIUM PANTOTHENATE\CYANOCOBALAMIN CO-57\FOLIC ACID\NIACINAMIDE\PYRIDOXINE HYDROCHLORIDE\RIBOFLAVIN\THIAMINE MONONITRATE
  29. VITAMIN B12 [Concomitant]
     Active Substance: CYANOCOBALAMIN
  30. PROCIT [Concomitant]
  31. TOPROL XL [Concomitant]
     Active Substance: METOPROLOL SUCCINATE
  32. SURFAK [Concomitant]
  33. NEXIUM [Suspect]
     Active Substance: ESOMEPRAZOLE MAGNESIUM
     Indication: GASTROOESOPHAGEAL REFLUX DISEASE
     Route: 048
     Dates: start: 199001, end: 201205
  34. PREVACID [Suspect]
     Active Substance: LANSOPRAZOLE
     Indication: GASTROOESOPHAGEAL REFLUX DISEASE
     Route: 065
     Dates: start: 1990, end: 2012
  35. METOPROLOL. [Concomitant]
     Active Substance: METOPROLOL
     Indication: HYPERTENSION
  36. RENAL [Concomitant]
  37. INSULIN [Concomitant]
     Active Substance: INSULIN NOS
  38. DIPHENHYDRAMINE. [Concomitant]
     Active Substance: DIPHENHYDRAMINE
  39. VIGAMOX [Concomitant]
     Active Substance: MOXIFLOXACIN HYDROCHLORIDE
  40. AZITHROMYCIN ANHYDROUS. [Concomitant]
     Active Substance: AZITHROMYCIN ANHYDROUS
  41. ONDANSETRON [Concomitant]
     Active Substance: ONDANSETRON
  42. KETOCONAZOLE. [Concomitant]
     Active Substance: KETOCONAZOLE
  43. DEXTROSE. [Concomitant]
     Active Substance: DEXTROSE
  44. MORPHINE SULFATE. [Concomitant]
     Active Substance: MORPHINE SULFATE
  45. LABETALOL [Concomitant]
     Active Substance: LABETALOL\LABETALOL HYDROCHLORIDE
  46. NOVOLOG [Concomitant]
     Active Substance: INSULIN ASPART
     Indication: DIABETES MELLITUS
  47. TAGAMET [Concomitant]
     Active Substance: CIMETIDINE
  48. CHERATUSSIN [Concomitant]
     Active Substance: AMMONIUM CHLORIDE\DEXTROMETHORPHAN\SODIUM CITRATE
  49. PROCRIT [Concomitant]
     Active Substance: ERYTHROPOIETIN
  50. FERRITIN [Concomitant]
     Active Substance: FERRITIN
  51. FOLIC ACID. [Concomitant]
     Active Substance: FOLIC ACID
  52. LORCET [Concomitant]
     Active Substance: ACETAMINOPHEN\HYDROCODONE BITARTRATE
  53. SPIRIVA [Concomitant]
     Active Substance: TIOTROPIUM BROMIDE MONOHYDRATE
  54. VERSED [Concomitant]
     Active Substance: MIDAZOLAM HYDROCHLORIDE
  55. NEXIUM [Suspect]
     Active Substance: ESOMEPRAZOLE MAGNESIUM
     Indication: GASTROOESOPHAGEAL REFLUX DISEASE
     Route: 048
     Dates: start: 2001, end: 2012
  56. HYDROCODONE/PARACETAMOL [Concomitant]
     Active Substance: ACETAMINOPHEN\HYDROCODONE BITARTRATE
  57. MINOXIDIL. [Concomitant]
     Active Substance: MINOXIDIL
  58. SENSIPAR [Concomitant]
     Active Substance: CINACALCET HYDROCHLORIDE
  59. PREDNISONE. [Concomitant]
     Active Substance: PREDNISONE
  60. AMOX/K CLAV [Concomitant]
     Active Substance: AMOXICILLIN\CLAVULANATE POTASSIUM
  61. NASACORT [Concomitant]
     Active Substance: TRIAMCINOLONE ACETONIDE
  62. NULYTELY [Concomitant]
     Active Substance: POLYETHYLENE GLYCOL 3350\POTASSIUM CHLORIDE\SODIUM BICARBONATE\SODIUM CHLORIDE
  63. PROPOFOL. [Concomitant]
     Active Substance: PROPOFOL
  64. CULTURELLE [Concomitant]
     Active Substance: LACTOBACILLUS RHAMNOSUS
  65. NITROGLYCERIN. [Concomitant]
     Active Substance: NITROGLYCERIN
  66. ERYTHMYCIN [Concomitant]

REACTIONS (7)
  - End stage renal disease [Unknown]
  - Chronic kidney disease [Unknown]
  - Renal failure [Unknown]
  - Nephrogenic anaemia [Unknown]
  - Cardio-respiratory arrest [Fatal]
  - Septic shock [Fatal]
  - Endocarditis [Fatal]

NARRATIVE: CASE EVENT DATE: 1999
